FAERS Safety Report 14753851 (Version 1)
Quarter: 2018Q2

REPORT INFORMATION
  Report Type: Spontaneous
  Country: ES (occurrence: ES)
  Receive Date: 20180412
  Receipt Date: 20180412
  Transmission Date: 20180711
  Serious: Yes (Hospitalization)
  Sender: FDA-Public Use
  Company Number: ES-PRINSTON PHARMACEUTICAL INC.-2018PRN00164

PATIENT
  Age: 61 Year
  Sex: Male

DRUGS (1)
  1. VALSARTAN AND SACUBITRIL [Suspect]
     Active Substance: SACUBITRIL\VALSARTAN
     Dosage: 100 UNK, 2X/DAY
     Route: 065

REACTIONS (1)
  - Ventricular tachycardia [Recovered/Resolved]
